FAERS Safety Report 12397968 (Version 2)
Quarter: 2016Q2

REPORT INFORMATION
  Report Type: Report from Study
  Country: IN (occurrence: IN)
  Receive Date: 20160524
  Receipt Date: 20160601
  Transmission Date: 20160815
  Serious: Yes (Hospitalization, Other)
  Sender: FDA-Public Use
  Company Number: IN-WATSON-2016-10510

PATIENT
  Age: 46 Year
  Sex: Female
  Weight: 72 kg

DRUGS (2)
  1. CONJUGATED ESTROGENS (STUDY DRUG) [Suspect]
     Active Substance: ESTROGENS, CONJUGATED
     Dosage: 2 TABLETS OF 0.625 MG
     Route: 048
     Dates: start: 20160429, end: 20160429
  2. CONJUGATED ESTROGENS (STUDY DRUG) [Suspect]
     Active Substance: ESTROGENS, CONJUGATED
     Indication: PRODUCT USED FOR UNKNOWN INDICATION
     Dosage: 2 TABLETS OF 0.625 MG
     Route: 048
     Dates: start: 20160415, end: 20160415

REACTIONS (5)
  - Upper respiratory tract infection [Recovered/Resolved]
  - Headache [Recovered/Resolved]
  - Panic attack [Recovered/Resolved]
  - Dyspnoea [Recovered/Resolved]
  - Chest pain [Recovered/Resolved]

NARRATIVE: CASE EVENT DATE: 20160511
